FAERS Safety Report 8332406-2 (Version None)
Quarter: 2012Q1

REPORT INFORMATION
  Report Type: 
  Country: None (occurrence: None)
  Receive Date: 20120315
  Receipt Date: 20110304
  Transmission Date: 20120608
  Serious: No
  Sender: FDA-Public Use
  Company Number: PHHY2011US19248

PATIENT
  Age: 55 Year

DRUGS (1)
  1. GILENYA [Suspect]
     Dosage: , ORAL
     Route: 048

REACTIONS (1)
  - EXERCISE TOLERANCE DECREASED [None]
